FAERS Safety Report 9454627 (Version 2)
Quarter: 2013Q4

REPORT INFORMATION
  Report Type: Spontaneous
  Country: JP (occurrence: JP)
  Receive Date: 20130812
  Receipt Date: 20131004
  Transmission Date: 20140711
  Serious: Yes (Life-Threatening, Hospitalization)
  Sender: FDA-Public Use
  Company Number: JP-ASTRAZENECA-2013SE62332

PATIENT
  Age: 46 Year
  Sex: Male
  Weight: 104 kg

DRUGS (9)
  1. DIPRIVAN [Suspect]
     Indication: INDUCTION OF ANAESTHESIA
     Dosage: 4 MG/KG/HR
     Route: 042
  2. CANDESARTAN CILEXETIL [Concomitant]
     Dosage: DOSE UNKNOWN
     Route: 048
  3. FENTANYL [Concomitant]
     Route: 042
  4. PIOGLITAZONE HYDROCHLORIDE [Concomitant]
     Route: 048
  5. GLIMEPIRIDE [Concomitant]
     Dosage: DOSE UNKNOWN
     Route: 048
  6. FENOFIBRATE [Concomitant]
     Dosage: DOSE UNKNOWN
     Route: 048
  7. CLOPIDOGREL SULFATE [Concomitant]
     Dosage: DOSE UNKNOWN
     Route: 048
  8. OXYGEN [Concomitant]
     Indication: INDUCTION AND MAINTENANCE OF ANAESTHESIA
     Dosage: AT INDUCTION: 5 L/MIN DURING MAINTENANCE: 1.5 L/MIN
     Route: 055
  9. SEVOFLURANE [Concomitant]
     Indication: MAINTENANCE OF ANAESTHESIA
     Dosage: 3 - 5%
     Route: 055

REACTIONS (2)
  - Septic shock [Recovering/Resolving]
  - Disseminated intravascular coagulation [Recovering/Resolving]
